FAERS Safety Report 10021160 (Version 1)
Quarter: 2014Q1

REPORT INFORMATION
  Report Type: Spontaneous
  Country: US (occurrence: None)
  Receive Date: 20140318
  Receipt Date: 20140318
  Transmission Date: 20141002
  Serious: Yes (Disabling)
  Sender: FDA-Public Use
  Company Number: None

PATIENT
  Age: 67 Year
  Sex: Female
  Weight: 67.13 kg

DRUGS (1)
  1. PROLIA SOL 60MG/ML [Suspect]
     Indication: OSTEOPOROSIS
     Dosage: INJECTION, EVERY 6 MONTHS
     Dates: start: 20120915, end: 20130916

REACTIONS (1)
  - Osteonecrosis of jaw [None]
